FAERS Safety Report 4266843-2 (Version None)
Quarter: 2004Q1

REPORT INFORMATION
  Report Type: 
  Country: None (occurrence: None)
  Receive Date: 20040108
  Receipt Date: 20040108
  Transmission Date: 20041129
  Serious: Yes (Hospitalization, Other)
  Sender: FDA-Public Use
  Company Number: None

PATIENT
  Age: 55 Year
  Sex: Male
  Weight: 90.7194 kg

DRUGS (1)
  1. PRAVACHOL [Suspect]
     Indication: BLOOD CHOLESTEROL INCREASED
     Dosage: ONCE NIGHTLY ORAL
     Route: 048
     Dates: start: 20030416, end: 20031229

REACTIONS (3)
  - DUODENAL ULCER [None]
  - DYSPEPSIA [None]
  - GASTRITIS [None]
